FAERS Safety Report 16029303 (Version 1)
Quarter: 2019Q1

REPORT INFORMATION
  Report Type: Spontaneous
  Country: US (occurrence: US)
  Receive Date: 20190304
  Receipt Date: 20190304
  Transmission Date: 20190418
  Serious: No
  Sender: FDA-Public Use
  Company Number: US-SA-2019SA058427

PATIENT

DRUGS (3)
  1. METHOTREXATE. [Suspect]
     Active Substance: METHOTREXATE
     Dosage: UNK UNK, UNK
     Route: 065
     Dates: start: 201704, end: 201705
  2. LEFLUNOMIDE. [Suspect]
     Active Substance: LEFLUNOMIDE
     Dosage: UNK UNK, UNK
     Route: 065
     Dates: start: 201805
  3. HYDROXYCHLOROQUINE [Suspect]
     Active Substance: HYDROXYCHLOROQUINE
     Dosage: UNK UNK, UNK
     Route: 065
     Dates: start: 201701, end: 201703

REACTIONS (5)
  - Insomnia [Unknown]
  - Rash [Unknown]
  - Diarrhoea [Unknown]
  - Mouth ulceration [Unknown]
  - Nausea [Unknown]
